FAERS Safety Report 15745996 (Version 2)
Quarter: 2018Q4

REPORT INFORMATION
  Report Type: Spontaneous
  Country: CH (occurrence: CH)
  Receive Date: 20181220
  Receipt Date: 20181228
  Transmission Date: 20190205
  Serious: Yes (Hospitalization, Other)
  Sender: FDA-Public Use
  Company Number: CH-PFIZER INC-2018517570

PATIENT
  Age: 49 Year
  Sex: Female

DRUGS (4)
  1. ENDOXAN [CYCLOPHOSPHAMIDE MONOHYDRATE] [Suspect]
     Active Substance: CYCLOPHOSPHAMIDE
     Dosage: 1 DF, CYCLIC (THE DOSAGE OF THE DRUG IS NOT KNOWN. 4 CYCLES OF INTRAVENOUS CHEMOTHERAPY PLANNED)
     Route: 041
     Dates: start: 20181106
  2. ADRIBLASTIN [Suspect]
     Active Substance: DOXORUBICIN HYDROCHLORIDE
     Dosage: 1 DF, CYCLIC (THE DOSAGE IS NOT KNOWN, 4 CYCLES PLANNED, FIRST CYCLE CARRIED OUT ON 06NOV2018)
     Route: 041
     Dates: start: 20181106
  3. PANTOZOL [Concomitant]
     Active Substance: PANTOPRAZOLE SODIUM
     Dosage: 20 MG, 1X/DAY
     Route: 048
  4. CO-AMOXI [Concomitant]
     Active Substance: AMOXICILLIN\CLAVULANATE POTASSIUM
     Dosage: 625 MG, 2X/DAY (THE DRUG IS REPLACED DURING HOSPITALIZATION WITH A MORE SPECIFIC ANTIBIOTIC THERAPY)
     Route: 048
     Dates: start: 201811, end: 20181115

REACTIONS (4)
  - Pyrexia [Recovered/Resolved]
  - Leukopenia [Recovered/Resolved]
  - Febrile neutropenia [Recovered/Resolved]
  - Pneumonia [Recovered/Resolved]

NARRATIVE: CASE EVENT DATE: 201811
